FAERS Safety Report 5141280-7 (Version None)
Quarter: 2006Q4

REPORT INFORMATION
  Report Type: 
  Country: None (occurrence: None)
  Receive Date: 20061101
  Receipt Date: 20061018
  Transmission Date: 20070319
  Serious: Yes (Hospitalization)
  Sender: FDA-Public Use
  Company Number: 2006CG01699

PATIENT
  Age: 57 Year
  Sex: Male
  Weight: 62 kg

DRUGS (11)
  1. OMEPRAZOLE [Suspect]
     Route: 048
  2. PREVISCAN [Suspect]
  3. PREVISCAN [Suspect]
     Dates: start: 20060429
  4. ASPIRIN [Suspect]
  5. CORDARONE [Concomitant]
  6. LASIX [Concomitant]
  7. ODRIK [Concomitant]
     Route: 048
  8. TARDYFERON B9 [Concomitant]
  9. ZOLPIDEM TARTRATE [Concomitant]
  10. LANTUS [Concomitant]
  11. NOVORAPID [Concomitant]

REACTIONS (9)
  - ARTHRALGIA [None]
  - DYSPNOEA [None]
  - HAEMOGLOBIN DECREASED [None]
  - INTERNATIONAL NORMALISED RATIO INCREASED [None]
  - MELAENA [None]
  - MULTIPLE DRUG OVERDOSE [None]
  - OEDEMA PERIPHERAL [None]
  - OVERDOSE [None]
  - PAIN IN EXTREMITY [None]
